FAERS Safety Report 7726735-0 (Version None)
Quarter: 2011Q3

REPORT INFORMATION
  Report Type: 
  Country: None (occurrence: None)
  Receive Date: 20110902
  Receipt Date: 20110829
  Transmission Date: 20111222
  Serious: Yes (Disabling, Other)
  Sender: FDA-Public Use
  Company Number: US-TEVA-278449USA

PATIENT
  Age: 73 Year
  Sex: Female

DRUGS (6)
  1. TAMOXIFEN CITRATE [Suspect]
     Indication: BREAST CANCER
     Dates: start: 20100105
  2. FISH OIL [Concomitant]
  3. ERGOCALCIFEROL [Concomitant]
  4. MULTI-VITAMINS [Concomitant]
  5. CALCIUM CARBONATE [Concomitant]
  6. TOCOPHEROL CONCENTRATE CAP [Concomitant]

REACTIONS (1)
  - DEAFNESS [None]
